FAERS Safety Report 6527059-X (Version None)
Quarter: 2010Q1

REPORT INFORMATION
  Report Type: 
  Country: None (occurrence: None)
  Receive Date: 20100105
  Receipt Date: 20091228
  Transmission Date: 20100710
  Serious: Yes (Death)
  Sender: FDA-Public Use
  Company Number: BR-ROCHE-667324

PATIENT
  Sex: Female
  Weight: 128 kg

DRUGS (11)
  1. TRASTUZUMAB [Suspect]
     Indication: BREAST CANCER
     Dosage: AS PER PROTOCOL, 8 MG/KG TAKEN AS LOADING DOSE.
     Route: 041
  2. TRASTUZUMAB [Suspect]
     Dosage: FREQUENCY: Q3W,  CYCLE 4.  LAST DOSE GIVEN ON 29 OCTOBER 2009.
     Route: 041
     Dates: start: 20090828
  3. TRASTUZUMAB [Suspect]
     Route: 041
     Dates: start: 20090828
  4. PERTUZUMAB [Suspect]
     Indication: BREAST CANCER
     Dosage: AS PER PROTOCOL, TAKEN AS LOADING DOSE
     Route: 041
  5. PERTUZUMAB [Suspect]
     Dosage: CYCLE 4.  LAST DOSE GIVEN ON 29 OCTOBER 2009.
     Route: 041
     Dates: start: 20090828
  6. PERTUZUMAB [Suspect]
     Route: 041
     Dates: start: 20090828
  7. DOCETAXEL [Suspect]
     Indication: BREAST CANCER
     Dosage: CYCLE 4.  LAST DOSE GIVEN ON 29 OCTOBER 2009.
     Route: 041
     Dates: start: 20090828
  8. DOCETAXEL [Suspect]
     Dosage: FORM: CONCENTRATE FOR SOLUTION FOR INFUSION
     Route: 041
     Dates: start: 20090828
  9. ISORDIL [Suspect]
     Indication: DRUG USE FOR UNKNOWN INDICATION
     Route: 065
     Dates: start: 20000101
  10. ENALAPRIL [Suspect]
     Indication: DRUG USE FOR UNKNOWN INDICATION
     Route: 065
     Dates: start: 19850101
  11. IPRATROPIUM BROMIDE [Suspect]
     Indication: DRUG USE FOR UNKNOWN INDICATION
     Route: 065
     Dates: start: 20000101

REACTIONS (1)
  - HEPATITIS FULMINANT [None]
